FAERS Safety Report 12479516 (Version 1)
Quarter: 2016Q2

REPORT INFORMATION
  Report Type: Spontaneous
  Country: US (occurrence: None)
  Receive Date: 20160617
  Receipt Date: 20160617
  Transmission Date: 20160815
  Serious: Yes (Hospitalization)
  Sender: FDA-Public Use
  Company Number: None

PATIENT
  Age: 38 Year
  Sex: Male
  Weight: 88 kg

DRUGS (3)
  1. COGENTIN [Concomitant]
     Active Substance: BENZTROPINE MESYLATE
  2. CLONAZAPAM [Concomitant]
     Active Substance: CLONAZEPAM
  3. ABILIFY MAINTENA [Suspect]
     Active Substance: ARIPIPRAZOLE
     Indication: SCHIZOPHRENIA
     Route: 028
     Dates: start: 20160505

REACTIONS (1)
  - Hospitalisation [None]

NARRATIVE: CASE EVENT DATE: 20160601
